FAERS Safety Report 6827182-6 (Version None)
Quarter: 2010Q3

REPORT INFORMATION
  Report Type: 
  Country: None (occurrence: None)
  Receive Date: 20100709
  Receipt Date: 20100628
  Transmission Date: 20110219
  Serious: Yes (Disabling, Other)
  Sender: FDA-Public Use
  Company Number: PT-GENZYME-FABR-1001361

PATIENT

DRUGS (8)
  1. FABRAZYME [Suspect]
     Indication: FABRY'S DISEASE
     Dosage: 70 MG, Q2W
     Route: 042
     Dates: start: 20011227
  2. FABRAZYME [Suspect]
     Dosage: 20 MG, Q4W
     Route: 042
     Dates: start: 20100415
  3. FABRAZYME [Suspect]
     Dosage: 35 MG, Q2W
     Route: 042
     Dates: start: 20091006, end: 20100401
  4. DAGRAVIT [Concomitant]
     Indication: VITAMIN SUPPLEMENTATION
     Dosage: UNK
     Dates: start: 20071008
  5. SEVELAMER [Concomitant]
     Indication: BLOOD PHOSPHORUS ABNORMAL
     Dosage: UNK
     Dates: start: 20071008
  6. NEORECORMON [Concomitant]
     Indication: ANAEMIA
     Dosage: UNK
     Dates: start: 20000101
  7. TEGRETOL [Concomitant]
     Indication: PAIN
     Dosage: UNK
     Dates: start: 19930101
  8. PANTOPRAZOLE [Concomitant]
     Indication: PROPHYLAXIS
     Dosage: UNK
     Dates: start: 19950101

REACTIONS (5)
  - BALANCE DISORDER [None]
  - GAIT DISTURBANCE [None]
  - NEPHROPATHY [None]
  - NEUROPATHY PERIPHERAL [None]
  - PAIN [None]
